FAERS Safety Report 8607596-4 (Version None)
Quarter: 2012Q3

REPORT INFORMATION
  Report Type: 
  Country: None (occurrence: None)
  Receive Date: 20120821
  Receipt Date: 20120815
  Transmission Date: 20120928
  Serious: Yes (Other)
  Sender: FDA-Public Use
  Company Number: US-COVIDIEN/TYCO HEALTHCARE/MALLINCKRODT-T201203190

PATIENT
  Age: 39 Year
  Sex: Female

DRUGS (3)
  1. HYDROMORPHONE HYDROCHLORIDE [Concomitant]
     Indication: PAIN
     Dosage: 4 MG, UNK
     Route: 048
  2. XANAX [Concomitant]
     Indication: ANXIETY
     Dosage: 4 MG, UNK
     Route: 048
  3. EXALGO [Suspect]
     Indication: PAIN
     Dosage: 12 MG, QD
     Route: 048
     Dates: start: 20110617

REACTIONS (1)
  - HOMICIDE [None]
